FAERS Safety Report 18249987 (Version 5)
Quarter: 2022Q1

REPORT INFORMATION
  Report Type: Spontaneous
  Country: US (occurrence: US)
  Receive Date: 20200909
  Receipt Date: 20220204
  Transmission Date: 20220424
  Serious: No
  Sender: FDA-Public Use
  Company Number: US-PFIZER INC-2020348199

PATIENT
  Age: 74 Year
  Sex: Female

DRUGS (3)
  1. IBRANCE [Suspect]
     Active Substance: PALBOCICLIB
     Dosage: 125 MG, CYCLIC(125 MG QD X 21 DAYS Q 28 DAYS/QD (ONCE A DAY) X FO)
     Dates: start: 20180830, end: 20210208
  2. IBRANCE [Suspect]
     Active Substance: PALBOCICLIB
     Dosage: 125 MG
     Dates: start: 20210807
  3. IBRANCE [Suspect]
     Active Substance: PALBOCICLIB
     Dosage: 125 MG
     Dates: start: 20200617

REACTIONS (5)
  - Arthralgia [Unknown]
  - Renal disorder [Unknown]
  - Product dose omission issue [Unknown]
  - Constipation [Unknown]
  - Abdominal pain upper [Unknown]
